FAERS Safety Report 5972133-X (Version None)
Quarter: 2008Q4

REPORT INFORMATION
  Report Type: 
  Country: None (occurrence: None)
  Receive Date: 20081201
  Receipt Date: 20080828
  Transmission Date: 20090506
  Serious: Yes (Life-Threatening, Other)
  Sender: FDA-Public Use
  Company Number: US-TEVA-174445USA

PATIENT
  Age: 34 Year
  Sex: Male
  Weight: 95.34 kg

DRUGS (1)
  1. SALBUTAMOL SULFATE INHALATION, 0.09 MG [Suspect]
     Indication: ASTHMA
     Route: 055

REACTIONS (3)
  - CHOKING SENSATION [None]
  - DRUG INEFFECTIVE [None]
  - PULMONARY CONGESTION [None]
